FAERS Safety Report 9784753 (Version 1)
Quarter: 2013Q4

REPORT INFORMATION
  Report Type: Spontaneous
  Country: IT (occurrence: IT)
  Receive Date: 20131227
  Receipt Date: 20131227
  Transmission Date: 20140711
  Serious: Yes (Other)
  Sender: FDA-Public Use
  Company Number: IT-AMGEN-ITASP2013090146

PATIENT
  Age: 72 Year
  Sex: Female

DRUGS (3)
  1. PROLIA [Suspect]
     Indication: OSTEOPOROSIS POSTMENOPAUSAL
     Dosage: 60 MG, CYCLICAL
     Route: 058
     Dates: start: 20130601
  2. EUTIROX [Concomitant]
     Dosage: 125 MUG, UNK
     Route: 048
  3. NEO LOTAN [Concomitant]
     Dosage: 50 MG, UNK
     Route: 048

REACTIONS (1)
  - Conjunctivitis bacterial [Recovered/Resolved]
